FAERS Safety Report 5595414-0 (Version None)
Quarter: 2008Q1

REPORT INFORMATION
  Report Type: 
  Country: None (occurrence: None)
  Receive Date: 20080118
  Receipt Date: 20080110
  Transmission Date: 20080703
  Serious: Yes (Other)
  Sender: FDA-Public Use
  Company Number: US-JNJFOC-20080102688

PATIENT
  Age: 18 Year
  Sex: Female
  Weight: 68.04 kg

DRUGS (2)
  1. TYLENOL COLD HEAD CONGESTION SEVERE DAYTIME COOL BURST [Suspect]
     Indication: NASOPHARYNGITIS
     Dosage: 2 CAPLETS
  2. HALLS [Concomitant]
     Indication: COUGH

REACTIONS (4)
  - HALLUCINATION [None]
  - INSOMNIA [None]
  - MEDICATION TAMPERING [None]
  - MYDRIASIS [None]
